FAERS Safety Report 12043026 (Version 1)
Quarter: 2016Q1

REPORT INFORMATION
  Report Type: Report from Study
  Country: US (occurrence: US)
  Receive Date: 20160208
  Receipt Date: 20160208
  Transmission Date: 20160526
  Serious: No
  Sender: FDA-Public Use
  Company Number: US-ABBVIE-15P-163-1406600-00

PATIENT
  Age: 64 Year
  Sex: Male

DRUGS (2)
  1. HUMIRA [Suspect]
     Active Substance: ADALIMUMAB
     Indication: PSORIATIC ARTHROPATHY
     Route: 065
     Dates: start: 20150808
  2. HUMIRA [Suspect]
     Active Substance: ADALIMUMAB
     Indication: RHEUMATOID ARTHRITIS
     Route: 065
     Dates: start: 20150513, end: 20150805

REACTIONS (8)
  - Pruritus [Recovering/Resolving]
  - Psoriasis [Unknown]
  - Headache [Recovered/Resolved]
  - Headache [Recovered/Resolved]
  - Nasopharyngitis [Unknown]
  - Nasal congestion [Recovered/Resolved]
  - Pruritus [Recovered/Resolved]
  - Headache [Recovering/Resolving]

NARRATIVE: CASE EVENT DATE: 2015
